FAERS Safety Report 17153819 (Version 1)
Quarter: 2019Q4

REPORT INFORMATION
  Report Type: Spontaneous
  Country: US (occurrence: US)
  Receive Date: 20191213
  Receipt Date: 20191213
  Transmission Date: 20200122
  Serious: No
  Sender: FDA-Public Use
  Company Number: US-TEVA-2019-US-1152072

PATIENT
  Age: 36 Year
  Sex: Female

DRUGS (6)
  1. TRIHEXYPHENIDYL [Concomitant]
     Active Substance: TRIHEXYPHENIDYL
  2. FOSMETPANTOTENATE. [Concomitant]
     Active Substance: FOSMETPANTOTENATE
     Indication: NEURODEGENERATIVE DISORDER
  3. COPAXONE [Suspect]
     Active Substance: GLATIRAMER ACETATE
     Indication: MULTIPLE SCLEROSIS
     Route: 058
  4. SINEMET [Concomitant]
     Active Substance: CARBIDOPA\LEVODOPA
  5. PANTOTHENIC ACID [Concomitant]
     Active Substance: PANTOTHENIC ACID
  6. BACLOFEN. [Concomitant]
     Active Substance: BACLOFEN

REACTIONS (2)
  - Alanine aminotransferase increased [Recovered/Resolved]
  - Aspartate aminotransferase increased [Recovered/Resolved]

NARRATIVE: CASE EVENT DATE: 20190829
